FAERS Safety Report 21847893 (Version 1)
Quarter: 2023Q1

REPORT INFORMATION
  Report Type: Spontaneous
  Country: US (occurrence: None)
  Receive Date: 20230110
  Receipt Date: 20230110
  Transmission Date: 20230418
  Serious: Yes (Hospitalization)
  Sender: FDA-Public Use
  Company Number: None

PATIENT
  Sex: Male

DRUGS (2)
  1. AMINOCAPROIC ACID [Suspect]
     Active Substance: AMINOCAPROIC ACID
     Indication: Haemophilia
     Dosage: OTHER STRENGTH : 0.25 GM/ML;?FREQUENCY : EVERY 6 HOURS;?
     Route: 048
     Dates: start: 20220915
  2. ADVATE [Suspect]
     Active Substance: ANTIHEMOPHILIC FACTOR, HUMAN RECOMBINANT
     Indication: Haemophilia
     Dosage: FREQUENCY : AS NEEDED;?
     Route: 042
     Dates: start: 20221209

REACTIONS (1)
  - Mouth haemorrhage [None]
